FAERS Safety Report 14999894 (Version 1)
Quarter: 2018Q2

REPORT INFORMATION
  Report Type: Spontaneous
  Country: US (occurrence: US)
  Receive Date: 20180612
  Receipt Date: 20180612
  Transmission Date: 20180711
  Serious: Yes (Hospitalization)
  Sender: FDA-Public Use
  Company Number: US-PERRIGO-18US005837

PATIENT
  Age: 38 Year
  Sex: Female

DRUGS (1)
  1. DIHYDROERGOTAMINE MESYLATE. [Suspect]
     Active Substance: DIHYDROERGOTAMINE MESYLATE
     Indication: MIGRAINE
     Dosage: 1 MG EVERY 8 HOURS
     Route: 042

REACTIONS (2)
  - Cerebrovascular accident [Recovered/Resolved]
  - Vasoconstriction [Recovered/Resolved]
